FAERS Safety Report 10195780 (Version 2)
Quarter: 2014Q2

REPORT INFORMATION
  Report Type: Spontaneous
  Country: US (occurrence: None)
  Receive Date: 20140522
  Receipt Date: 20140624
  Transmission Date: 20141212
  Serious: Yes (Other)
  Sender: FDA-Public Use
  Company Number: AUR-APL-2014-05907

PATIENT
  Sex: Female

DRUGS (1)
  1. RIBAVIRINE [Suspect]
     Indication: RESPIRATORY SYNCYTIAL VIRUS INFECTION
     Dosage: 600 OR 800 MG TWICE DAILY FOR 5-10 DAYS, ORAL
     Route: 048

REACTIONS (4)
  - Haemolytic anaemia [None]
  - Lactic acidosis [None]
  - Acute leukaemia [None]
  - Acute graft versus host disease in intestine [None]
